FAERS Safety Report 24422600 (Version 1)
Quarter: 2024Q4

REPORT INFORMATION
  Report Type: Spontaneous
  Country: US (occurrence: US)
  Receive Date: 20241010
  Receipt Date: 20241010
  Transmission Date: 20250114
  Serious: No
  Sender: JOHNSON AND JOHNSON
  Company Number: US-JNJFOC-20241007218

PATIENT
  Age: 62 Year
  Sex: Male

DRUGS (19)
  1. OPSUMIT [Suspect]
     Active Substance: MACITENTAN
     Indication: Product used for unknown indication
     Route: 048
  2. ORENITRAM [Suspect]
     Active Substance: TREPROSTINIL
     Indication: Pulmonary arterial hypertension
     Route: 048
     Dates: start: 20240612
  3. ORENITRAM [Suspect]
     Active Substance: TREPROSTINIL
     Dosage: 0.375 MG, EVERY EIGHT HOURS (Q8H), 0.5 MG, CONCENTRATION OF 0.125 MG
     Route: 048
  4. ORENITRAM [Suspect]
     Active Substance: TREPROSTINIL
     Route: 048
  5. ORENITRAM [Suspect]
     Active Substance: TREPROSTINIL
     Route: 048
  6. ORENITRAM [Suspect]
     Active Substance: TREPROSTINIL
     Route: 048
  7. JARDIANCE [Concomitant]
     Active Substance: EMPAGLIFLOZIN
  8. ATORVASTATIN [Concomitant]
     Active Substance: ATORVASTATIN
  9. TIZANIDINE [Concomitant]
     Active Substance: TIZANIDINE
  10. LATANOPROST [Concomitant]
     Active Substance: LATANOPROST
  11. ALLOPURINOL [Concomitant]
     Active Substance: ALLOPURINOL
  12. ELIQUIS [Concomitant]
     Active Substance: APIXABAN
  13. LANTUS [Concomitant]
     Active Substance: INSULIN GLARGINE
  14. POTASSIUM [Concomitant]
     Active Substance: POTASSIUM
  15. REVATIO [Concomitant]
     Active Substance: SILDENAFIL CITRATE
  16. BUMETANIDE [Concomitant]
     Active Substance: BUMETANIDE
  17. SPIRONOLACTONE [Concomitant]
     Active Substance: SPIRONOLACTONE
  18. ATROVENT HFA [Concomitant]
     Active Substance: IPRATROPIUM BROMIDE
  19. TRULICITY [Concomitant]
     Active Substance: DULAGLUTIDE

REACTIONS (5)
  - Myalgia [Unknown]
  - Back pain [Unknown]
  - Arthralgia [Unknown]
  - Muscle spasms [Unknown]
  - Headache [Not Recovered/Not Resolved]

NARRATIVE: CASE EVENT DATE: 20240101
